FAERS Safety Report 5858583-0 (Version None)
Quarter: 2008Q3

REPORT INFORMATION
  Report Type: 
  Country: None (occurrence: None)
  Receive Date: 20080826
  Receipt Date: 20080815
  Transmission Date: 20090109
  Serious: Yes (Other)
  Sender: FDA-Public Use
  Company Number: SE-PFIZER INC-2008068634

PATIENT
  Sex: Male

DRUGS (7)
  1. PREDNISOLONE [Suspect]
     Indication: NASAL POLYPS
     Route: 048
     Dates: start: 20080416, end: 20080401
  2. PREDNISOLONE [Suspect]
     Route: 048
     Dates: start: 20080401, end: 20080507
  3. WARFARIN SODIUM [Suspect]
     Indication: AORTIC ANEURYSM
     Route: 048
  4. SIMVASTATIN [Concomitant]
     Route: 048
  5. COZAAR [Concomitant]
     Route: 048
  6. LASIX [Concomitant]
     Route: 048
  7. ATENOLOL [Concomitant]
     Route: 048

REACTIONS (1)
  - INTERNATIONAL NORMALISED RATIO INCREASED [None]
